FAERS Safety Report 6559195-6 (Version None)
Quarter: 2010Q1

REPORT INFORMATION
  Report Type: 
  Country: None (occurrence: None)
  Receive Date: 20100129
  Receipt Date: 20090922
  Transmission Date: 20100710
  Serious: No
  Sender: FDA-Public Use
  Company Number: US-ABBOTT-09P-163-0570227-00

PATIENT
  Sex: Female
  Weight: 54.48 kg

DRUGS (13)
  1. HUMIRA [Suspect]
     Indication: COLITIS ULCERATIVE
     Dates: start: 20070201, end: 20070201
  2. HUMIRA [Suspect]
     Indication: CROHN'S DISEASE
     Dosage: 80MG; DAY 22
  3. HUMIRA [Suspect]
     Dosage: DAY 29; Q OTHER WEEK
  4. HUMIRA [Suspect]
  5. ACIPHEX [Concomitant]
     Indication: DRUG USE FOR UNKNOWN INDICATION
  6. ASACOL [Concomitant]
     Indication: DRUG USE FOR UNKNOWN INDICATION
  7. QUESTRAN [Concomitant]
     Indication: DRUG USE FOR UNKNOWN INDICATION
  8. FOLIC ACID [Concomitant]
     Indication: DRUG USE FOR UNKNOWN INDICATION
  9. IRON [Concomitant]
     Indication: DRUG USE FOR UNKNOWN INDICATION
  10. ALLEGRA [Concomitant]
     Indication: DRUG USE FOR UNKNOWN INDICATION
     Dosage: DAILY
  11. FLONASE [Concomitant]
     Indication: DRUG USE FOR UNKNOWN INDICATION
  12. CELEBREX [Concomitant]
     Indication: DRUG USE FOR UNKNOWN INDICATION
  13. FLUCONAZOLE [Concomitant]
     Indication: DRUG USE FOR UNKNOWN INDICATION
     Dates: start: 20090909

REACTIONS (15)
  - ABDOMINAL PAIN [None]
  - ABDOMINAL PAIN UPPER [None]
  - DIARRHOEA HAEMORRHAGIC [None]
  - DRUG INEFFECTIVE [None]
  - DRY SKIN [None]
  - DYSPNOEA [None]
  - FEMALE GENITAL TRACT FISTULA [None]
  - FUNGAL INFECTION [None]
  - OESOPHAGEAL CANDIDIASIS [None]
  - PARAESTHESIA [None]
  - PNEUMONIA [None]
  - PNEUMONIA PRIMARY ATYPICAL [None]
  - SKIN FISSURES [None]
  - THROAT IRRITATION [None]
  - VULVOVAGINAL MYCOTIC INFECTION [None]
